FAERS Safety Report 17088980 (Version 1)
Quarter: 2019Q4

REPORT INFORMATION
  Report Type: Spontaneous
  Country: SE (occurrence: SE)
  Receive Date: 20191128
  Receipt Date: 20191128
  Transmission Date: 20200122
  Serious: Yes (Other)
  Sender: FDA-Public Use
  Company Number: SE-ASTRAZENECA-2019SF51734

PATIENT
  Sex: Male

DRUGS (2)
  1. LOSEC [Suspect]
     Active Substance: OMEPRAZOLE
     Indication: GASTRIC ULCER
     Route: 048
  2. LOSEC [Suspect]
     Active Substance: OMEPRAZOLE
     Indication: GASTRIC ULCER
     Dosage: SANDOZ
     Route: 048

REACTIONS (11)
  - Eyelid infection [Unknown]
  - Suicidal ideation [Unknown]
  - Feeling abnormal [Unknown]
  - Vision blurred [Recovering/Resolving]
  - Vertigo positional [Recovering/Resolving]
  - Headache [Recovering/Resolving]
  - Hyperhidrosis [Recovering/Resolving]
  - Alopecia [Recovering/Resolving]
  - Blood pressure increased [Unknown]
  - Borrelia infection [Unknown]
  - Dizziness [Recovering/Resolving]
